FAERS Safety Report 18696328 (Version 2)
Quarter: 2021Q3

REPORT INFORMATION
  Report Type: Spontaneous
  Country: FR (occurrence: FR)
  Receive Date: 20210104
  Receipt Date: 20210702
  Transmission Date: 20211014
  Serious: Yes (Disabling, Other)
  Sender: FDA-Public Use
  Company Number: FR-ROCHE-2742600

PATIENT
  Age: 73 Year
  Sex: Male

DRUGS (12)
  1. BRONCHOKOD [Suspect]
     Active Substance: CARBOCYSTEINE
     Indication: PRODUCT USED FOR UNKNOWN INDICATION
     Route: 065
     Dates: start: 20200203
  2. IZALGI [Suspect]
     Active Substance: ACETAMINOPHEN\OPIUM
     Indication: PRODUCT USED FOR UNKNOWN INDICATION
     Route: 065
  3. DOLIPRANE [Suspect]
     Active Substance: ACETAMINOPHEN
     Dosage: TABLET 1 TO 3 TIMES PER DAY AS NEEDED, SPACING OUT THE CATCHES OF 4 HOURS MINIMUM. MAXIMUM 4 TABLET
     Route: 065
  4. LEVOFLOXACIN. [Suspect]
     Active Substance: LEVOFLOXACIN
     Indication: PRODUCT USED FOR UNKNOWN INDICATION
     Route: 065
     Dates: start: 20200130
  5. NEBIVOLOL. [Concomitant]
     Active Substance: NEBIVOLOL
     Dosage: 1 TABLET IN THE MORNING FOR 3 MONTHS
  6. RINOCLENIL [Suspect]
     Active Substance: BECLOMETHASONE
     Indication: PRODUCT USED FOR UNKNOWN INDICATION
     Dosage: 1 SPRAY IN EACH NOSTRIL 3 TIMES A DAY FOR 7 DAYS
     Route: 065
     Dates: start: 20200203
  7. TAMIFLU [Suspect]
     Active Substance: OSELTAMIVIR PHOSPHATE
     Indication: PRODUCT USED FOR UNKNOWN INDICATION
     Route: 065
  8. LIPTRUZET [Concomitant]
     Active Substance: ATORVASTATIN CALCIUM\EZETIMIBE
     Dosage: 1 TABLET ONCE A DAY FOR 3 MONTHS
  9. DOLIPRANE [Suspect]
     Active Substance: ACETAMINOPHEN
     Indication: PRODUCT USED FOR UNKNOWN INDICATION
     Route: 065
     Dates: start: 20200203
  10. IMPORTAL [Concomitant]
     Active Substance: LACTITOL
     Dosage: 1 SACHET DILUTED IN WATER PER DAY
  11. ASPIRINE PROTECT [Concomitant]
     Active Substance: ASPIRIN
     Dosage: 1 TABLETS IN THE EVENING FOR 3 MONTHS
  12. DOLIPRANE [Concomitant]
     Active Substance: ACETAMINOPHEN
     Dosage: TABLET 1 TO 3 TIMES PER DAY AS NEEDED, SPACING OUT THE CATCHES OF 4 HOURS MINIMUM. MAXIMUM 4 TABLET

REACTIONS (2)
  - Pneumonia influenzal [Unknown]
  - Tendon rupture [Unknown]
